FAERS Safety Report 23550294 (Version 1)
Quarter: 2024Q1

REPORT INFORMATION
  Report Type: Spontaneous
  Country: NO (occurrence: NO)
  Receive Date: 20240221
  Receipt Date: 20240221
  Transmission Date: 20240410
  Serious: Yes (Death)
  Sender: FDA-Public Use
  Company Number: NO-002147023-NVSC2024NO036566

PATIENT
  Age: 1 Year

DRUGS (1)
  1. ZOLGENSMA [Suspect]
     Active Substance: ONASEMNOGENE ABEPARVOVEC-XIOI
     Indication: Product used for unknown indication
     Dosage: UNK
     Route: 042

REACTIONS (1)
  - Asphyxia [Fatal]
